FAERS Safety Report 9248674 (Version 1)
Quarter: 2013Q2

REPORT INFORMATION
  Report Type: Spontaneous
  Country: US (occurrence: None)
  Receive Date: 20130419
  Receipt Date: 20130419
  Transmission Date: 20140414
  Serious: No
  Sender: FDA-Public Use
  Company Number: None

PATIENT
  Age: 68 Year
  Sex: Female
  Weight: 45.5 kg

DRUGS (21)
  1. XARELTO [Suspect]
     Route: 048
     Dates: start: 201206
  2. MUCINEX [Concomitant]
  3. LOVASTATIN [Concomitant]
  4. TIKOSYN [Concomitant]
  5. VALTREX [Concomitant]
  6. METOPROLOL [Concomitant]
  7. KCL [Concomitant]
  8. SPIRIVA [Concomitant]
  9. PROZAC [Concomitant]
  10. LASIX [Concomitant]
  11. NITROGLYCERIN [Concomitant]
  12. VITAMIN D [Concomitant]
  13. NYSTAT [Concomitant]
  14. PREMARIN [Concomitant]
  15. ZOVIRAX [Concomitant]
  16. LEVOTHYROXINE [Concomitant]
  17. LORTAB [Concomitant]
  18. FAMOTIDINE [Concomitant]
  19. KLONOPIN [Concomitant]
  20. ADVAIR [Concomitant]
  21. CENTRUM SILVER [Concomitant]

REACTIONS (3)
  - Alopecia [None]
  - Gingival bleeding [None]
  - Epistaxis [None]
